FAERS Safety Report 8291535-2 (Version None)
Quarter: 2012Q2

REPORT INFORMATION
  Report Type: 
  Country: None (occurrence: None)
  Receive Date: 20120412
  Receipt Date: 20120302
  Transmission Date: 20120825
  Serious: Yes (Hospitalization)
  Sender: FDA-Public Use
  Company Number: DSA_48855_2012

PATIENT
  Sex: Female

DRUGS (2)
  1. XENAZINE [Suspect]
     Indication: HUNTINGTON'S DISEASE
     Dosage: (90 TABLETS IN THREE DAYS ORAL) ; (12.5 MG TID ORAL)
     Route: 048
     Dates: start: 20090506
  2. XENAZINE [Suspect]
     Indication: HUNTINGTON'S DISEASE
     Dosage: (90 TABLETS IN THREE DAYS ORAL) ; (12.5 MG TID ORAL)
     Route: 048

REACTIONS (3)
  - DRUG ABUSE [None]
  - PARANOIA [None]
  - TREATMENT NONCOMPLIANCE [None]
